FAERS Safety Report 19618358 (Version 2)
Quarter: 2021Q4

REPORT INFORMATION
  Report Type: Report from Study
  Country: US (occurrence: US)
  Receive Date: 20210728
  Receipt Date: 20211004
  Transmission Date: 20220303
  Serious: Yes (Hospitalization)
  Sender: FDA-Public Use
  Company Number: NVSC2021US160141

PATIENT
  Sex: Male

DRUGS (1)
  1. ARZERRA [Suspect]
     Active Substance: OFATUMUMAB
     Indication: Waldenstrom^s macroglobulinaemia
     Dosage: 100 MG, QMO
     Route: 065
     Dates: start: 20210707

REACTIONS (2)
  - Rash [Unknown]
  - Product use in unapproved indication [Unknown]
